FAERS Safety Report 20863287 (Version 1)
Quarter: 2022Q2

REPORT INFORMATION
  Report Type: Spontaneous
  Country: None (occurrence: US)
  Receive Date: 20220523
  Receipt Date: 20220523
  Transmission Date: 20220721
  Serious: Yes (Life-Threatening, Other)
  Sender: FDA-Public Use
  Company Number: US-Rare Disease Therapeutics, Inc.-2129074

PATIENT
  Age: 14 Year
  Sex: Male
  Weight: 43.5 kg

DRUGS (3)
  1. ANAVIP [Suspect]
     Active Substance: PIT VIPER (CROTALINAE) IMMUNE GLOBULIN ANTIVENIN (EQUINE)
     Indication: Snake bite
     Route: 042
     Dates: start: 20220420, end: 20220426
  2. ACETAMINOPHEN [Concomitant]
     Active Substance: ACETAMINOPHEN
     Route: 048
  3. CROFAB [Concomitant]
     Active Substance: CROTALIDAE POLYVALENT IMMUNE FAB (OVINE)
     Route: 042
     Dates: start: 20220420

REACTIONS (1)
  - Type I hypersensitivity [Recovered/Resolved]

NARRATIVE: CASE EVENT DATE: 20220420
